FAERS Safety Report 9277405 (Version 1)
Quarter: 2013Q2

REPORT INFORMATION
  Report Type: Spontaneous
  Country: US (occurrence: US)
  Receive Date: 20130508
  Receipt Date: 20130508
  Transmission Date: 20140414
  Serious: Yes (Hospitalization)
  Sender: FDA-Public Use
  Company Number: US-BAYER-2013-056033

PATIENT
  Age: 27 Year
  Sex: Female
  Weight: 108.39 kg

DRUGS (3)
  1. YASMIN [Suspect]
     Dosage: UNK
  2. NAPROSYN [Concomitant]
     Dosage: 500 MG, BID
  3. PREDNISONE [Concomitant]
     Indication: URTICARIA
     Dosage: 10 MG, UNK

REACTIONS (1)
  - Deep vein thrombosis [None]
